FAERS Safety Report 4530355-9 (Version None)
Quarter: 2004Q4

REPORT INFORMATION
  Report Type: 
  Country: None (occurrence: None)
  Receive Date: 20041216
  Receipt Date: 20041216
  Transmission Date: 20050328
  Serious: No
  Sender: FDA-Public Use
  Company Number: None

PATIENT
  Sex: Female
  Weight: 74.8435 kg

DRUGS (2)
  1. FOSAMAX [Suspect]
     Indication: OSTEOPENIA
     Dosage: 70 MG Q WEEK
  2. ACTONEL [Suspect]
     Dosage: 35 MG Q WEEK

REACTIONS (2)
  - GASTRITIS [None]
  - IMPAIRED GASTRIC EMPTYING [None]
